FAERS Safety Report 13880627 (Version 1)
Quarter: 2017Q3

REPORT INFORMATION
  Report Type: Spontaneous
  Country: US (occurrence: US)
  Receive Date: 20170818
  Receipt Date: 20170818
  Transmission Date: 20171127
  Serious: Yes (Other)
  Sender: FDA-Public Use
  Company Number: US-PFIZER INC-2017356377

PATIENT
  Age: 20 Year
  Sex: Female

DRUGS (3)
  1. ARA-C [Concomitant]
     Active Substance: CYTARABINE
     Indication: NERVOUS SYSTEM DISORDER
     Dosage: 50 MG, UNK
  2. METHOTREXATE SODIUM. [Suspect]
     Active Substance: METHOTREXATE SODIUM
     Indication: NERVOUS SYSTEM DISORDER
     Dosage: UNK
     Route: 037
  3. HYDROCORTISONE /00028602/ [Concomitant]
     Active Substance: HYDROCORTISONE
     Indication: NERVOUS SYSTEM DISORDER
     Dosage: UNK

REACTIONS (1)
  - Meningitis [Unknown]
